FAERS Safety Report 15254851 (Version 1)
Quarter: 2018Q3

REPORT INFORMATION
  Report Type: Spontaneous
  Country: US (occurrence: US)
  Receive Date: 20180808
  Receipt Date: 20180808
  Transmission Date: 20181010
  Serious: No
  Sender: FDA-Public Use
  Company Number: US-MYLANLABS-2018M1058607

PATIENT
  Age: 68 Year
  Sex: Male
  Weight: 99.77 kg

DRUGS (6)
  1. MUSE [Suspect]
     Active Substance: ALPROSTADIL
     Indication: ERECTILE DYSFUNCTION
     Dosage: 500 ?G, PRN, AS NEEDED
     Route: 066
     Dates: start: 20180721
  2. MUSE [Suspect]
     Active Substance: ALPROSTADIL
     Dosage: 500 ?G, PRN
     Route: 066
     Dates: start: 20180723
  3. ASPIRIN                            /00002701/ [Concomitant]
     Active Substance: ASPIRIN
     Indication: ATRIAL FLUTTER
     Dosage: UNK
  4. FAMOTIDINE. [Concomitant]
     Active Substance: FAMOTIDINE
     Indication: DYSPEPSIA
     Dosage: UNK
  5. MUSE [Suspect]
     Active Substance: ALPROSTADIL
     Dosage: 500 ?G, UNK
     Route: 066
     Dates: start: 20180722
  6. SPIRIVA [Concomitant]
     Active Substance: TIOTROPIUM BROMIDE MONOHYDRATE
     Indication: EMPHYSEMA
     Dosage: UNK
     Route: 055

REACTIONS (2)
  - Wrong technique in product usage process [Recovered/Resolved]
  - Drug ineffective [Unknown]

NARRATIVE: CASE EVENT DATE: 20180721
